FAERS Safety Report 8186919-7 (Version None)
Quarter: 2012Q1

REPORT INFORMATION
  Report Type: 
  Country: None (occurrence: None)
  Receive Date: 20120302
  Receipt Date: 20120220
  Transmission Date: 20120608
  Serious: Yes (Hospitalization)
  Sender: FDA-Public Use
  Company Number: DSU-2012-01353

PATIENT
  Age: 72 Year
  Sex: Male
  Weight: 72.5755 kg

DRUGS (4)
  1. WELCHOL [Suspect]
     Indication: HYPERLIPIDAEMIA
     Dosage: 3750 MG (1875 MG,BID), PER ORAL
     Route: 048
     Dates: start: 20110101, end: 20110101
  2. COUMADIN [Suspect]
     Indication: PRODUCT USED FOR UNKNOWN INDICATION
     Dates: start: 20100101
  3. WELCHOL [Suspect]
     Indication: HYPERLIPIDAEMIA
     Dosage: 3.75 GM (3.75 GM,QD), PER ORAL
     Route: 048
     Dates: start: 20111001, end: 20110101
  4. WELCHOL [Suspect]
     Indication: HYPERLIPIDAEMIA
     Dosage: 3.75 GM (3.75 GM,QD), PER ORAL
     Route: 048
     Dates: start: 20110101

REACTIONS (9)
  - FAECES DISCOLOURED [None]
  - SPINAL FUSION SURGERY [None]
  - INTERNATIONAL NORMALISED RATIO DECREASED [None]
  - WEIGHT DECREASED [None]
  - CHANGE OF BOWEL HABIT [None]
  - DRUG INTERACTION [None]
  - INTERNATIONAL NORMALISED RATIO INCREASED [None]
  - CONSTIPATION [None]
  - NERVE COMPRESSION [None]
